FAERS Safety Report 25154490 (Version 1)
Quarter: 2025Q2

REPORT INFORMATION
  Report Type: Spontaneous
  Country: DE (occurrence: DE)
  Receive Date: 20250403
  Receipt Date: 20250403
  Transmission Date: 20250717
  Serious: Yes (Death, Hospitalization, Other)
  Sender: SANDOZ
  Company Number: DE-002147023-NVSC2020DE341928

PATIENT
  Sex: Female
  Weight: 68 kg

DRUGS (2)
  1. FULVESTRANT [Suspect]
     Active Substance: FULVESTRANT
     Indication: Breast cancer metastatic
     Dosage: 250 MG, QD (OTHER, 2X FORTNIGHTLY THEN EVERY 4 WEEKS)
     Route: 030
     Dates: start: 20201209, end: 20201223
  2. KISQALI [Suspect]
     Active Substance: RIBOCICLIB
     Indication: Breast cancer metastatic
     Dosage: 600 MG, QD (SCHEME 21 DAYS INTAKE, 7 DAYS BREAK)
     Route: 048
     Dates: start: 20201209, end: 20201219

REACTIONS (10)
  - Respiratory failure [Fatal]
  - Septic shock [Fatal]
  - Malignant peritoneal neoplasm [Fatal]
  - Blood alkaline phosphatase increased [Fatal]
  - International normalised ratio increased [Fatal]
  - Spontaneous bacterial peritonitis [Not Recovered/Not Resolved]
  - Malignant ascites [Not Recovered/Not Resolved]
  - Ascites [Not Recovered/Not Resolved]
  - Staphylococcal infection [Unknown]
  - Urinary retention [Unknown]

NARRATIVE: CASE EVENT DATE: 20201219
